FAERS Safety Report 14251085 (Version 1)
Quarter: 2017Q4

REPORT INFORMATION
  Report Type: Spontaneous
  Country: US (occurrence: None)
  Receive Date: 20171205
  Receipt Date: 20171205
  Transmission Date: 20180321
  Serious: Yes (Hospitalization)
  Sender: FDA-Public Use
  Company Number: None

PATIENT
  Age: 55 Year
  Sex: Female

DRUGS (13)
  1. VITAMIN B12 [Concomitant]
     Active Substance: CYANOCOBALAMIN
  2. BACLOFEN. [Concomitant]
     Active Substance: BACLOFEN
  3. VITAMIN D3 [Concomitant]
     Active Substance: CHOLECALCIFEROL
  4. TECFIDERA [Concomitant]
     Active Substance: DIMETHYL FUMARATE
  5. BUPROPION. [Concomitant]
     Active Substance: BUPROPION
  6. WELLBUTRIN [Concomitant]
     Active Substance: BUPROPION HYDROCHLORIDE
  7. CLIMARA [Concomitant]
     Active Substance: ESTRADIOL
  8. MAGNESIUM [Concomitant]
     Active Substance: MAGNESIUM
  9. SINGULAIR [Concomitant]
     Active Substance: MONTELUKAST SODIUM
  10. STOOL SOFTNR [Concomitant]
  11. OCREVUS [Suspect]
     Active Substance: OCRELIZUMAB
     Indication: MULTIPLE SCLEROSIS
     Dosage: 300 MG DAY 1/2 WEEKS LATE IV
     Route: 042
     Dates: start: 20170613
  12. TRAMADOL HCL [Concomitant]
     Active Substance: TRAMADOL HYDROCHLORIDE
  13. ADDERALL [Concomitant]
     Active Substance: AMPHETAMINE ASPARTATE\AMPHETAMINE SULFATE\DEXTROAMPHETAMINE SACCHARATE\DEXTROAMPHETAMINE SULFATE

REACTIONS (2)
  - Bladder operation [None]
  - Hospitalisation [None]

NARRATIVE: CASE EVENT DATE: 20171003
